FAERS Safety Report 26057009 (Version 1)
Quarter: 2025Q4

REPORT INFORMATION
  Report Type: Spontaneous
  Country: US (occurrence: US)
  Receive Date: 20251118
  Receipt Date: 20251118
  Transmission Date: 20260118
  Serious: No
  Sender: AMNEAL
  Company Number: US-AMNEAL PHARMACEUTICALS-2025-AMRX-01796

PATIENT
  Age: 42 Year
  Sex: Female
  Weight: 54.422 kg

DRUGS (1)
  1. ISOTRETINOIN [Suspect]
     Active Substance: ISOTRETINOIN
     Indication: Product used for unknown indication
     Dosage: 1 CAPSULES (30 MG), 2 /DAY
     Route: 048
     Dates: start: 2022, end: 20250502

REACTIONS (4)
  - Vision blurred [Unknown]
  - Arthralgia [Unknown]
  - Epistaxis [Unknown]
  - Myalgia [Unknown]

NARRATIVE: CASE EVENT DATE: 20250401
